FAERS Safety Report 21355497 (Version 1)
Quarter: 2022Q3

REPORT INFORMATION
  Report Type: Spontaneous
  Country: DE (occurrence: DE)
  Receive Date: 20220920
  Receipt Date: 20220920
  Transmission Date: 20221027
  Serious: Yes (Hospitalization)
  Sender: FDA-Public Use
  Company Number: None

PATIENT
  Age: 78 Year
  Sex: Female

DRUGS (4)
  1. DICLOFENAC [Suspect]
     Active Substance: DICLOFENAC
     Indication: Product used for unknown indication
     Dosage: 75 MG, LAST SEVERAL TIMES A DAY
     Route: 048
  2. OXYCODONE [Suspect]
     Active Substance: OXYCODONE
     Indication: Product used for unknown indication
     Dosage: DISCONTINUED
     Route: 048
  3. OMEPRAZOLE [Concomitant]
     Active Substance: OMEPRAZOLE
     Indication: Product used for unknown indication
     Dosage: 20 MG, IF NECESSARY TO TAKE DICLOFENAC
     Route: 048
  4. CANDESARTAN [Concomitant]
     Active Substance: CANDESARTAN
     Indication: Product used for unknown indication
     Dosage: 32 MG, 0.5-0-0-0
     Route: 048

REACTIONS (5)
  - Emotional distress [Unknown]
  - Weight decreased [Unknown]
  - Abdominal pain lower [Unknown]
  - Diarrhoea [Unknown]
  - Vomiting [Unknown]
